FAERS Safety Report 18557466 (Version 1)
Quarter: 2020Q4

REPORT INFORMATION
  Report Type: Other
  Country: DE (occurrence: DE)
  Receive Date: 20201130
  Receipt Date: 20201130
  Transmission Date: 20210114
  Serious: Yes (Other)
  Sender: FDA-Public Use
  Company Number: DE-ROCHE-2721490

PATIENT

DRUGS (5)
  1. RITUXIMAB. [Suspect]
     Active Substance: RITUXIMAB
     Indication: DIFFUSE LARGE B-CELL LYMPHOMA
     Route: 041
  2. METHOTREXATE. [Suspect]
     Active Substance: METHOTREXATE
     Indication: DIFFUSE LARGE B-CELL LYMPHOMA
     Dosage: 3.5 G/M2
     Route: 042
  3. CYTARABINE. [Suspect]
     Active Substance: CYTARABINE
     Indication: DIFFUSE LARGE B-CELL LYMPHOMA
     Dosage: 2X2 G/M2/D
     Route: 042
  4. BUSULFAN. [Suspect]
     Active Substance: BUSULFAN
     Indication: DIFFUSE LARGE B-CELL LYMPHOMA
     Dosage: 3.2 MG/KGKG
     Route: 065
  5. THIOTEPA. [Suspect]
     Active Substance: THIOTEPA
     Indication: DIFFUSE LARGE B-CELL LYMPHOMA
     Dosage: 5 MG/KG/D
     Route: 065

REACTIONS (8)
  - Pneumocystis jirovecii pneumonia [Unknown]
  - Febrile neutropenia [Unknown]
  - Pneumonia [Unknown]
  - Infection [Unknown]
  - Bronchopulmonary aspergillosis [Unknown]
  - Nausea [Unknown]
  - Large intestinal ulcer haemorrhage [Unknown]
  - Renal failure [Unknown]
